FAERS Safety Report 13015241 (Version 4)
Quarter: 2021Q1

REPORT INFORMATION
  Report Type: Spontaneous
  Country: FR (occurrence: FR)
  Receive Date: 20161211
  Receipt Date: 20210216
  Transmission Date: 20210419
  Serious: Yes (Other)
  Sender: FDA-Public Use
  Company Number: FR-AMGEN-FRASP2016172648

PATIENT
  Age: 51 Year
  Sex: Female

DRUGS (3)
  1. IMMUNOGLOBULIN I.V [Suspect]
     Active Substance: HUMAN IMMUNOGLOBULIN G
     Indication: IMMUNE THROMBOCYTOPENIA
     Dosage: UNK
     Route: 042
  2. VINBLASTINE [Concomitant]
     Active Substance: VINBLASTINE
     Indication: IMMUNE THROMBOCYTOPENIA
     Dosage: 5 MG/M2, UNK
  3. NPLATE [Suspect]
     Active Substance: ROMIPLOSTIM
     Indication: IMMUNE THROMBOCYTOPENIA
     Dosage: 10 MG/KG, QWK
     Route: 065

REACTIONS (4)
  - Off label use [Unknown]
  - Thrombocytosis [Unknown]
  - Deep vein thrombosis [Recovered/Resolved]
  - Pulmonary embolism [Recovered/Resolved]
